FAERS Safety Report 25068796 (Version 2)
Quarter: 2025Q3

REPORT INFORMATION
  Report Type: Report from Study
  Country: US (occurrence: US)
  Receive Date: 20250312
  Receipt Date: 20250826
  Transmission Date: 20251020
  Serious: Yes (Other)
  Sender: UCB
  Company Number: US-UCBSA-2025013700

PATIENT
  Age: 6 Year
  Sex: Male
  Weight: 13.02 kg

DRUGS (1)
  1. FINTEPLA [Suspect]
     Active Substance: FENFLURAMINE
     Indication: Product used for unknown indication

REACTIONS (1)
  - Aortic dilatation [Unknown]

NARRATIVE: CASE EVENT DATE: 20250211
